FAERS Safety Report 7234077-5 (Version None)
Quarter: 2011Q1

REPORT INFORMATION
  Report Type: 
  Country: None (occurrence: None)
  Receive Date: 20110113
  Receipt Date: 20110113
  Transmission Date: 20110831
  Serious: Yes (Hospitalization)
  Sender: FDA-Public Use
  Company Number: None

PATIENT
  Sex: Female
  Weight: 77.1115 kg

DRUGS (1)
  1. AMRUBICIN 40MG/M2 [Suspect]
     Indication: SMALL CELL LUNG CANCER STAGE UNSPECIFIED
     Dosage: 70 MG, DAYS 1-3, IV
     Route: 042
     Dates: start: 20101129, end: 20101201

REACTIONS (2)
  - METASTASES TO CENTRAL NERVOUS SYSTEM [None]
  - CONVULSION [None]
